FAERS Safety Report 13285350 (Version 1)
Quarter: 2017Q1

REPORT INFORMATION
  Report Type: Spontaneous
  Country: FR (occurrence: FR)
  Receive Date: 20170301
  Receipt Date: 20170301
  Transmission Date: 20170428
  Serious: Yes (Other)
  Sender: FDA-Public Use
  Company Number: FR-MUNDIPHARMA DS AND PHARMACOVIGILANCE-GBR-2017-0043765

PATIENT
  Age: 59 Year
  Sex: Male

DRUGS (6)
  1. CEFOXITINE PANPHARMA [Concomitant]
     Active Substance: CEFOXITIN SODIUM
  2. CELLCEPT [Concomitant]
     Active Substance: MYCOPHENOLATE MOFETIL\MYCOPHENOLATE MOFETIL HYDROCHLORIDE
  3. CEFAZOLINE [Concomitant]
     Active Substance: CEFAZOLIN SODIUM
  4. OXYNORM [Suspect]
     Active Substance: OXYCODONE HYDROCHLORIDE
     Indication: PAIN
     Dosage: 15 MG, DAILY
     Route: 042
     Dates: start: 20170107
  5. CEFTRIAXONE. [Concomitant]
     Active Substance: CEFTRIAXONE
  6. VANCOMYCINE [Concomitant]
     Active Substance: VANCOMYCIN

REACTIONS (3)
  - Hallucination [Recovering/Resolving]
  - Fall [Recovered/Resolved]
  - Confusional state [Recovering/Resolving]

NARRATIVE: CASE EVENT DATE: 20170109
